FAERS Safety Report 6940427-7 (Version None)
Quarter: 2010Q3

REPORT INFORMATION
  Report Type: 
  Country: None (occurrence: None)
  Receive Date: 20100820
  Receipt Date: 20100813
  Transmission Date: 20110219
  Serious: Yes (Hospitalization)
  Sender: FDA-Public Use
  Company Number: 1000015253

PATIENT
  Age: 62 Year
  Sex: Female

DRUGS (5)
  1. SAVELLA [Suspect]
     Indication: FIBROMYALGIA
     Dosage: 12.5 MG (12.5 MG, 1 IN 1 D), ORAL
     Route: 048
     Dates: start: 20100409, end: 20100409
  2. SAVELLA [Suspect]
     Indication: FIBROMYALGIA
     Dosage: 25 MG (12.5 MG, 2 IN 1 D), ORAL
     Route: 048
     Dates: start: 20100410, end: 20100410
  3. SAVELLA [Suspect]
     Indication: FIBROMYALGIA
     Dosage: 25 MG (12.5 MG, 2 IN 1 D), ORAL
     Route: 048
     Dates: start: 20100410, end: 20100410
  4. INSULIN [Concomitant]
  5. BENICAR [Concomitant]

REACTIONS (5)
  - INCOHERENT [None]
  - MEMORY IMPAIRMENT [None]
  - PARANOIA [None]
  - PSYCHOTIC DISORDER [None]
  - SUICIDAL IDEATION [None]
